FAERS Safety Report 24112378 (Version 1)
Quarter: 2024Q3

REPORT INFORMATION
  Report Type: Report from Study
  Country: US (occurrence: None)
  Receive Date: 20240719
  Receipt Date: 20240719
  Transmission Date: 20241016
  Serious: Yes (Other)
  Sender: ASTRAZENECA
  Company Number: 2022A382138

PATIENT
  Sex: Male

DRUGS (1)
  1. CALQUENCE [Suspect]
     Active Substance: ACALABRUTINIB
     Indication: Follicular lymphoma stage II
     Route: 048

REACTIONS (5)
  - Fluid retention [Unknown]
  - Platelet count decreased [Unknown]
  - Balance disorder [Unknown]
  - Gait disturbance [Unknown]
  - Product dose omission issue [Unknown]
